FAERS Safety Report 7792093-9 (Version None)
Quarter: 2011Q3

REPORT INFORMATION
  Report Type: 
  Country: None (occurrence: None)
  Receive Date: 20110929
  Receipt Date: 20110916
  Transmission Date: 20111222
  Serious: Yes (Hospitalization)
  Sender: FDA-Public Use
  Company Number: 2011SP003039

PATIENT
  Age: 50 Year
  Sex: Female

DRUGS (9)
  1. LATUDA [Suspect]
     Indication: HALLUCINATION, AUDITORY
     Dosage: 40 MG;QD;ORAL ; 80 MG;QD;ORAL ; 40 MG;QD;ORAL
     Route: 048
     Dates: start: 20110613, end: 20110817
  2. LATUDA [Suspect]
     Indication: SCHIZOPHRENIA
     Dosage: 40 MG;QD;ORAL ; 80 MG;QD;ORAL ; 40 MG;QD;ORAL
     Route: 048
     Dates: start: 20110613, end: 20110817
  3. LATUDA [Suspect]
     Indication: HALLUCINATION, AUDITORY
     Dosage: 40 MG;QD;ORAL ; 80 MG;QD;ORAL ; 40 MG;QD;ORAL
     Route: 048
     Dates: start: 20110101, end: 20110101
  4. LATUDA [Suspect]
     Indication: SCHIZOPHRENIA
     Dosage: 40 MG;QD;ORAL ; 80 MG;QD;ORAL ; 40 MG;QD;ORAL
     Route: 048
     Dates: start: 20110101, end: 20110101
  5. LATUDA [Suspect]
     Indication: HALLUCINATION, AUDITORY
     Dosage: 40 MG;QD;ORAL ; 80 MG;QD;ORAL ; 40 MG;QD;ORAL
     Route: 048
     Dates: start: 20110818, end: 20110101
  6. LATUDA [Suspect]
     Indication: SCHIZOPHRENIA
     Dosage: 40 MG;QD;ORAL ; 80 MG;QD;ORAL ; 40 MG;QD;ORAL
     Route: 048
     Dates: start: 20110818, end: 20110101
  7. LTIHIUM [Concomitant]
  8. VENLAFAXINE [Concomitant]
  9. TRAZODONE HYDROCHLORIDE [Concomitant]

REACTIONS (3)
  - AGGRESSION [None]
  - DRUG INEFFECTIVE [None]
  - WEIGHT INCREASED [None]
